FAERS Safety Report 18210806 (Version 2)
Quarter: 2020Q4

REPORT INFORMATION
  Report Type: Spontaneous
  Country: US (occurrence: US)
  Receive Date: 20200830
  Receipt Date: 20201026
  Transmission Date: 20210113
  Serious: No
  Sender: FDA-Public Use
  Company Number: US-ASTRAZENECA-2020SF07676

PATIENT
  Age: 54 Year
  Sex: Male
  Weight: 108.9 kg

DRUGS (2)
  1. HUMALOG [Concomitant]
     Active Substance: INSULIN LISPRO
  2. BYDUREON BCISE [Suspect]
     Active Substance: EXENATIDE
     Indication: TYPE 2 DIABETES MELLITUS
     Route: 065
     Dates: start: 2020

REACTIONS (5)
  - Injection site mass [Unknown]
  - Device leakage [Unknown]
  - Weight decreased [Unknown]
  - Injection site erythema [Unknown]
  - Amnesia [Unknown]

NARRATIVE: CASE EVENT DATE: 2020
